FAERS Safety Report 5657530-4 (Version None)
Quarter: 2008Q1

REPORT INFORMATION
  Report Type: 
  Country: None (occurrence: None)
  Receive Date: 20080310
  Receipt Date: 20080227
  Transmission Date: 20080703
  Serious: Yes (Hospitalization)
  Sender: FDA-Public Use
  Company Number: PHHY2008JP02341

PATIENT
  Sex: Female

DRUGS (4)
  1. CYCLOSPORINE [Suspect]
     Indication: BONE MARROW TRANSPLANT
  2. METHOTREXATE [Suspect]
     Indication: BONE MARROW TRANSPLANT
  3. FLUOROURACIL [Concomitant]
     Indication: BONE MARROW TRANSPLANT
  4. ENDOXAN [Concomitant]
     Indication: BONE MARROW TRANSPLANT

REACTIONS (1)
  - CHRONIC GRANULOMATOUS DISEASE [None]
